FAERS Safety Report 23942947 (Version 1)
Quarter: 2024Q2

REPORT INFORMATION
  Report Type: Spontaneous
  Country: US (occurrence: None)
  Receive Date: 20240605
  Receipt Date: 20240605
  Transmission Date: 20240716
  Serious: Yes (Other)
  Sender: FDA-Public Use
  Company Number: None

PATIENT
  Age: 30 Year
  Sex: Female

DRUGS (1)
  1. MONISTAT 1 COMBINATION PACK [Suspect]
     Active Substance: MICONAZOLE NITRATE
     Indication: Fungal infection
     Route: 067
     Dates: start: 20240604, end: 20240604

REACTIONS (3)
  - Application site pain [None]
  - Chemical burn [None]
  - Application site pain [None]

NARRATIVE: CASE EVENT DATE: 20240604
